FAERS Safety Report 25682984 (Version 1)
Quarter: 2025Q3

REPORT INFORMATION
  Report Type: Spontaneous
  Country: GB (occurrence: GB)
  Receive Date: 20250814
  Receipt Date: 20250814
  Transmission Date: 20251020
  Serious: Yes (Other)
  Sender: ELI LILLY AND COMPANY
  Company Number: None

PATIENT
  Sex: Female

DRUGS (1)
  1. TERIPARATIDE [Suspect]
     Active Substance: TERIPARATIDE
     Indication: Product used for unknown indication
     Route: 065

REACTIONS (7)
  - Cerebrovascular accident [Unknown]
  - Muscle spasms [Unknown]
  - Arthralgia [Unknown]
  - Pain in extremity [Unknown]
  - Spinal fracture [Unknown]
  - Trichorrhexis [Unknown]
  - Hyperhidrosis [Unknown]
